FAERS Safety Report 6172422-2 (Version None)
Quarter: 2009Q2

REPORT INFORMATION
  Report Type: 
  Country: None (occurrence: None)
  Receive Date: 20090429
  Receipt Date: 20090420
  Transmission Date: 20091009
  Serious: Yes (Hospitalization, Other)
  Sender: FDA-Public Use
  Company Number: ES-ELI_LILLY_AND_COMPANY-ES200904004424

PATIENT
  Age: 73 Year
  Sex: Male

DRUGS (2)
  1. ZYPREXA [Suspect]
     Indication: PSEUDODEMENTIA
     Dosage: 2.5 MG, DAILY (1/D)
     Route: 048
     Dates: start: 20080601, end: 20090122
  2. MIRTAZAPINA [Concomitant]
     Indication: PSEUDODEMENTIA
     Dosage: 45 MG, DAILY (1/D)
     Route: 048
     Dates: start: 20080601, end: 20090122

REACTIONS (3)
  - RESPIRATORY FAILURE [None]
  - RESPIRATORY TRACT INFECTION [None]
  - RHABDOMYOLYSIS [None]
